FAERS Safety Report 6891423-X (Version None)
Quarter: 2010Q3

REPORT INFORMATION
  Report Type: 
  Country: None (occurrence: None)
  Receive Date: 20100731
  Receipt Date: 20070727
  Transmission Date: 20110219
  Serious: No
  Sender: FDA-Public Use
  Company Number: US-PFIZER INC-2007062484

PATIENT
  Sex: Female
  Weight: 56 kg

DRUGS (2)
  1. FLAGYL [Suspect]
     Indication: DIARRHOEA
     Dates: start: 20070401
  2. FLAGYL [Suspect]
     Indication: HAEMATOCHEZIA

REACTIONS (15)
  - BREAST TENDERNESS [None]
  - COUGH [None]
  - DIARRHOEA [None]
  - DYSGEUSIA [None]
  - FATIGUE [None]
  - FLATULENCE [None]
  - FREQUENT BOWEL MOVEMENTS [None]
  - GASTROINTESTINAL HYPERMOTILITY [None]
  - MYALGIA [None]
  - NAUSEA [None]
  - PRURITUS [None]
  - TINEA PEDIS [None]
  - TONGUE COATED [None]
  - UPPER-AIRWAY COUGH SYNDROME [None]
  - WEIGHT DECREASED [None]
